FAERS Safety Report 14161139 (Version 3)
Quarter: 2017Q4

REPORT INFORMATION
  Report Type: Spontaneous
  Country: US (occurrence: US)
  Receive Date: 20171106
  Receipt Date: 20171222
  Transmission Date: 20180321
  Serious: No
  Sender: FDA-Public Use
  Company Number: US-GLAXOSMITHKLINE-US2017GSK169163

PATIENT
  Sex: Female

DRUGS (1)
  1. BENLYSTA [Suspect]
     Active Substance: BELIMUMAB
     Indication: SYSTEMIC LUPUS ERYTHEMATOSUS
     Dosage: UNK UNK, CYC
     Route: 042
     Dates: start: 2014

REACTIONS (8)
  - Drug effect decreased [Unknown]
  - Malaise [Unknown]
  - Fatigue [Unknown]
  - Nausea [Unknown]
  - Abdominal discomfort [Unknown]
  - Adverse event [Unknown]
  - Adverse drug reaction [Unknown]
  - Vomiting [Unknown]
